APPROVED DRUG PRODUCT: ZOLEDRONIC ACID
Active Ingredient: ZOLEDRONIC ACID
Strength: EQ 5MG BASE/100ML
Dosage Form/Route: INJECTABLE;INTRAVENOUS
Application: A202837 | Product #001
Applicant: HOSPIRA INC
Approved: Apr 5, 2013 | RLD: No | RS: No | Type: DISCN